FAERS Safety Report 5812394-0 (Version None)
Quarter: 2008Q3

REPORT INFORMATION
  Report Type: 
  Country: None (occurrence: None)
  Receive Date: 20080716
  Receipt Date: 20080707
  Transmission Date: 20090109
  Serious: Yes (Other)
  Sender: FDA-Public Use
  Company Number: CN-PFIZER INC-2008057217

PATIENT
  Sex: Female

DRUGS (1)
  1. CARDURA [Suspect]
     Indication: BLADDER DISORDER
     Route: 048
     Dates: start: 20080101, end: 20080706

REACTIONS (3)
  - HAEMATURIA [None]
  - MEDICATION ERROR [None]
  - RENAL PAIN [None]
